FAERS Safety Report 21584509 (Version 1)
Quarter: 2022Q4

REPORT INFORMATION
  Report Type: Spontaneous
  Country: CZ (occurrence: CZ)
  Receive Date: 20221111
  Receipt Date: 20221111
  Transmission Date: 20230113
  Serious: Yes (Hospitalization, Other)
  Sender: FDA-Public Use
  Company Number: CZ-AMGEN-CZESP2022189083

PATIENT
  Age: 47 Year
  Sex: Female

DRUGS (3)
  1. TRASTUZUMAB [Suspect]
     Active Substance: TRASTUZUMAB
     Indication: HER2 positive breast cancer
     Dosage: UNK
     Route: 065
  2. PACLITAXEL [Concomitant]
     Active Substance: PACLITAXEL
     Indication: HER2 positive breast cancer
     Route: 065
  3. PERTUZUMAB [Concomitant]
     Active Substance: PERTUZUMAB
     Indication: HER2 positive breast cancer
     Route: 065

REACTIONS (11)
  - General physical health deterioration [Recovering/Resolving]
  - Stevens-Johnson syndrome [Unknown]
  - Deep vein thrombosis [Unknown]
  - Bullous erysipelas [Unknown]
  - Haematoma [Unknown]
  - Necrosis [Unknown]
  - Hepatic failure [Recovering/Resolving]
  - Cellulitis [Unknown]
  - Neutropenia [Unknown]
  - Oedema peripheral [Unknown]
  - Pyrexia [Unknown]

NARRATIVE: CASE EVENT DATE: 20220101
